FAERS Safety Report 13463431 (Version 1)
Quarter: 2017Q2

REPORT INFORMATION
  Report Type: Report from Study
  Country: ZA (occurrence: ZA)
  Receive Date: 20170420
  Receipt Date: 20170420
  Transmission Date: 20170830
  Serious: Yes (Hospitalization)
  Sender: FDA-Public Use
  Company Number: PHHY2017ZA055875

PATIENT
  Age: 74 Year
  Sex: Male

DRUGS (8)
  1. VERAHEXAL 240 SR [Suspect]
     Active Substance: VERAPAMIL HYDROCHLORIDE
     Indication: PAIN
     Dosage: 240 MG, UNK
     Route: 048
     Dates: start: 20170109
  2. FORVENT [Concomitant]
     Indication: CHRONIC OBSTRUCTIVE PULMONARY DISEASE
     Dosage: 18 UG, UNK
     Route: 048
     Dates: start: 20170109
  3. UROMAX (TAMSULOSIN HYDROCHLORIDE) [Concomitant]
     Active Substance: TAMSULOSIN HYDROCHLORIDE
     Indication: PROSTATIC DISORDER
     Dosage: 0.4 MG, UNK
     Route: 048
     Dates: start: 20170109
  4. ESCITALOPRAM [Concomitant]
     Active Substance: ESCITALOPRAM OXALATE
     Indication: DEPRESSION
     Dosage: UNK
     Route: 048
     Dates: start: 20170109
  5. TRAMAZAC CO [Concomitant]
     Active Substance: ACETAMINOPHEN\TRAMADOL
     Indication: PAIN
     Dosage: UNK
     Route: 048
     Dates: start: 20170109
  6. DIAPHAGE [Concomitant]
     Active Substance: METFORMIN HYDROCHLORIDE
     Indication: DIABETES MELLITUS
     Dosage: UNK
     Route: 048
     Dates: start: 20170109
  7. NUELIN SA [Concomitant]
     Active Substance: THEOPHYLLINE ANHYDROUS
     Indication: PRODUCT USED FOR UNKNOWN INDICATION
     Dosage: 250 MG, UNK
     Route: 048
     Dates: start: 20170109
  8. DUOVENT [Concomitant]
     Active Substance: FENOTEROL HYDROBROMIDE
     Indication: ASTHMA
     Dosage: UNK
     Route: 048
     Dates: start: 20170109

REACTIONS (1)
  - Emphysema [Unknown]

NARRATIVE: CASE EVENT DATE: 20170403
